FAERS Safety Report 4814275-8 (Version None)
Quarter: 2005Q4

REPORT INFORMATION
  Report Type: 
  Country: None (occurrence: None)
  Receive Date: 20051028
  Receipt Date: 20050728
  Transmission Date: 20060501
  Serious: No
  Sender: FDA-Public Use
  Company Number: US-GLAXOSMITHKLINE-A0568107A

PATIENT
  Age: 54 Year
  Sex: Female

DRUGS (6)
  1. ADVAIR DISKUS 100/50 [Suspect]
     Indication: BRONCHITIS
     Dosage: 1PUFF PER DAY
     Route: 055
  2. CALCIUM GLUCONATE [Concomitant]
     Route: 048
  3. FLAX SEED OIL [Concomitant]
  4. VIT B12 [Concomitant]
  5. VIT C [Concomitant]
  6. METHYLSULFONYLMETHANE [Concomitant]

REACTIONS (1)
  - TONGUE DISCOLOURATION [None]
